FAERS Safety Report 10513552 (Version 1)
Quarter: 2014Q4

REPORT INFORMATION
  Report Type: Spontaneous
  Country: US (occurrence: US)
  Receive Date: 20141013
  Receipt Date: 20141013
  Transmission Date: 20150528
  Serious: No
  Sender: FDA-Public Use
  Company Number: US-PFIZER INC-2014280495

PATIENT
  Age: 46 Year
  Sex: Female
  Weight: 72.56 kg

DRUGS (1)
  1. ARTHROTEC [Suspect]
     Active Substance: DICLOFENAC SODIUM\MISOPROSTOL
     Indication: ARTHRITIS
     Dosage: [MISOPROSTOL 200MCG]/ [DICLOFENAC SODIUM 50MG], 1X/DAY
     Dates: start: 20140821, end: 201409

REACTIONS (2)
  - Diarrhoea [Unknown]
  - Abdominal pain [Recovered/Resolved]

NARRATIVE: CASE EVENT DATE: 20140821
